FAERS Safety Report 4365110-6 (Version None)
Quarter: 2004Q2

REPORT INFORMATION
  Report Type: 
  Country: None (occurrence: None)
  Receive Date: 20040520
  Receipt Date: 20040507
  Transmission Date: 20050107
  Serious: Yes (Death)
  Sender: FDA-Public Use
  Company Number: HQWYE770310MAY04

PATIENT
  Age: 21 Year
  Sex: Female

DRUGS (5)
  1. INDERAL [Suspect]
     Indication: TACHYCARDIA
     Route: 048
     Dates: start: 20040401
  2. BRICALIN (TERBUTALINE SULFATE) [Concomitant]
  3. THEOPHYLLINE [Concomitant]
  4. IPRATROPIUM BROMIDE [Concomitant]
  5. BUDESONIDE (BUDESONIDE) [Concomitant]

REACTIONS (1)
  - ACUTE RESPIRATORY FAILURE [None]
